FAERS Safety Report 20365189 (Version 3)
Quarter: 2022Q1

REPORT INFORMATION
  Report Type: Report from Study
  Country: US (occurrence: US)
  Receive Date: 20220122
  Receipt Date: 20220216
  Transmission Date: 20220423
  Serious: Yes (Other)
  Sender: FDA-Public Use
  Company Number: US-NOVARTISPH-NVSC2022US007937

PATIENT
  Age: 60 Year
  Sex: Female

DRUGS (3)
  1. ENTRESTO [Suspect]
     Active Substance: SACUBITRIL\VALSARTAN
     Indication: Product used for unknown indication
     Dosage: 50 MG, BID
     Route: 048
     Dates: start: 202107
  2. METHIMAZOLE [Suspect]
     Active Substance: METHIMAZOLE
     Indication: Basedow^s disease
     Dosage: UNK
     Route: 065
  3. METHIMAZOLE [Suspect]
     Active Substance: METHIMAZOLE
     Indication: Thyrotoxic crisis

REACTIONS (8)
  - Atrial fibrillation [Unknown]
  - Nasopharyngitis [Unknown]
  - Weight decreased [Unknown]
  - Dyspnoea [Unknown]
  - Malaise [Unknown]
  - Throat clearing [Unknown]
  - Seasonal allergy [Unknown]
  - Cough [Not Recovered/Not Resolved]

NARRATIVE: CASE EVENT DATE: 20211201
